FAERS Safety Report 5147578-0 (Version None)
Quarter: 2006Q4

REPORT INFORMATION
  Report Type: 
  Country: None (occurrence: None)
  Receive Date: 20061106
  Receipt Date: 20061024
  Transmission Date: 20070319
  Serious: Yes (Other)
  Sender: FDA-Public Use
  Company Number: 2006129980

PATIENT
  Sex: Female

DRUGS (2)
  1. XANAX [Suspect]
  2. TYLENOL PM (DIPHENHYDRAMINE, PARACETAMOL) [Concomitant]

REACTIONS (1)
  - DRUG SCREEN FALSE POSITIVE [None]
